FAERS Safety Report 16673460 (Version 2)
Quarter: 2019Q4

REPORT INFORMATION
  Report Type: Spontaneous
  Country: US (occurrence: US)
  Receive Date: 20190806
  Receipt Date: 20191108
  Transmission Date: 20200122
  Serious: No
  Sender: FDA-Public Use
  Company Number: US-PFIZER INC-2019337076

PATIENT
  Age: 59 Year
  Sex: Female

DRUGS (1)
  1. IBRANCE [Suspect]
     Active Substance: PALBOCICLIB
     Dosage: 125 MG, CYCLIC (3 WEEKS ON, 1 WEEK OFF)
     Route: 048
     Dates: start: 20190104

REACTIONS (6)
  - Abdominal distension [Unknown]
  - Stomatitis [Unknown]
  - Fatigue [Unknown]
  - Red blood cell count abnormal [Unknown]
  - Alopecia [Unknown]
  - White blood cell disorder [Unknown]

NARRATIVE: CASE EVENT DATE: 2019
